FAERS Safety Report 6031155-3 (Version None)
Quarter: 2008Q4

REPORT INFORMATION
  Report Type: 
  Country: None (occurrence: None)
  Receive Date: 20081222
  Receipt Date: 20081017
  Transmission Date: 20090506
  Serious: No
  Sender: FDA-Public Use
  Company Number: US-WYE-H06481408

PATIENT
  Age: 63 Year
  Sex: Female
  Weight: 65.38 kg

DRUGS (3)
  1. PRISTIQ [Suspect]
     Indication: PANIC ATTACK
     Dosage: 502 MG 1X PER 1 DAY, ORAL
     Route: 048
     Dates: start: 20080912
  2. LIPITOR [Concomitant]
  3. ALENDRONATE SODIUM [Concomitant]

REACTIONS (2)
  - DIZZINESS [None]
  - INSOMNIA [None]
